FAERS Safety Report 4279811-1 (Version None)
Quarter: 2004Q1

REPORT INFORMATION
  Report Type: 
  Country: None (occurrence: None)
  Receive Date: 20040126
  Receipt Date: 20040105
  Transmission Date: 20041129
  Serious: Yes (Other)
  Sender: FDA-Public Use
  Company Number: US063263 HQWYE151307JAN04

PATIENT
  Age: 67 Year
  Sex: Female

DRUGS (8)
  1. ENBREL [Suspect]
     Indication: TEMPORAL ARTERITIS
     Dosage: 25 MG, TWICE WEEKLY, SC
     Route: 058
     Dates: start: 20031103
  2. PREDNISONE [Concomitant]
  3. MORPHINE [Concomitant]
  4. ACETAMINOPHEN [Concomitant]
  5. ATORVASTATIN [Concomitant]
  6. ACETYLSALICYLIC ACID SRT [Concomitant]
  7. SODIUM PICOSULFATE [Concomitant]
  8. CALCIUM [Concomitant]

REACTIONS (2)
  - VISION BLURRED [None]
  - VISUAL DISTURBANCE [None]
